FAERS Safety Report 24893512 (Version 1)
Quarter: 2025Q1

REPORT INFORMATION
  Report Type: Spontaneous
  Country: US (occurrence: US)
  Receive Date: 20250128
  Receipt Date: 20250128
  Transmission Date: 20250409
  Serious: Yes (Other)
  Sender: CIPLA
  Company Number: US-CIPLA LTD.-2024US08507

PATIENT

DRUGS (7)
  1. GABAPENTIN [Suspect]
     Active Substance: GABAPENTIN
     Route: 064
  2. FLUOXETINE [Suspect]
     Active Substance: FLUOXETINE HYDROCHLORIDE
     Route: 064
  3. CLONAZEPAM [Suspect]
     Active Substance: CLONAZEPAM
     Route: 064
  4. CLONIDINE [Suspect]
     Active Substance: CLONIDINE
     Route: 064
  5. QUETIAPINE [Suspect]
     Active Substance: QUETIAPINE
     Route: 064
  6. ZONISAMIDE [Suspect]
     Active Substance: ZONISAMIDE
     Route: 064
  7. INSULIN NOS [Suspect]
     Active Substance: INSULIN NOS
     Route: 064

REACTIONS (4)
  - Infantile apnoea [Unknown]
  - Neonatal disorder [Unknown]
  - Tremor [Unknown]
  - Foetal exposure during pregnancy [Unknown]
